FAERS Safety Report 6265400-6 (Version None)
Quarter: 2009Q3

REPORT INFORMATION
  Report Type: 
  Country: None (occurrence: None)
  Receive Date: 20090713
  Receipt Date: 20090701
  Transmission Date: 20100115
  Serious: Yes (Other)
  Sender: FDA-Public Use
  Company Number: US-BAYER-200925431NA

PATIENT
  Age: 29 Year
  Sex: Female
  Weight: 54 kg

DRUGS (1)
  1. ULTRAVIST 300 [Suspect]
     Indication: URINARY TRACT INFECTION
     Dosage: TOTAL DAILY DOSE: 120 ML  UNIT DOSE: 100 ML
     Route: 042
     Dates: start: 20090630, end: 20090630

REACTIONS (2)
  - DIZZINESS [None]
  - HEADACHE [None]
